FAERS Safety Report 5590615-X (Version None)
Quarter: 2008Q1

REPORT INFORMATION
  Report Type: 
  Country: None (occurrence: None)
  Receive Date: 20080109
  Receipt Date: 20071224
  Transmission Date: 20080703
  Serious: Yes (Hospitalization)
  Sender: FDA-Public Use
  Company Number: ENTC2007-0372

PATIENT
  Age: 67 Year
  Sex: Male

DRUGS (12)
  1. STALEVO 100 [Suspect]
     Indication: PARKINSON'S DISEASE
     Dosage: 100/25/200 MG TID, ORAL
     Route: 048
     Dates: start: 20070414, end: 20070830
  2. ISTRADEFYLLINE                          (KW-6002)        INVESTIGATION [Concomitant]
  3. DOXEPIN HCL [Concomitant]
  4. ASPIRIN [Concomitant]
  5. ASPIRIN [Concomitant]
  6. CALCIUM GLUCONATE [Concomitant]
  7. MULTI-VITAMIN [Concomitant]
  8. ADVIL LIQUI-GELS [Concomitant]
  9. CRESTOR [Concomitant]
  10. PLAVIX [Concomitant]
  11. FLOMAX [Concomitant]
  12. LEVAQUIN [Concomitant]

REACTIONS (21)
  - ABDOMINAL DISTENSION [None]
  - ADENOCARCINOMA PANCREAS [None]
  - ASTHENIA [None]
  - BARRETT'S OESOPHAGUS [None]
  - BLOOD AMYLASE INCREASED [None]
  - BLOOD GLUCOSE INCREASED [None]
  - CACHEXIA [None]
  - DEFAECATION URGENCY [None]
  - DEHYDRATION [None]
  - DIARRHOEA [None]
  - DIZZINESS [None]
  - GASTRIC CANCER [None]
  - GASTRIC HAEMORRHAGE [None]
  - GASTRITIS [None]
  - HIATUS HERNIA [None]
  - NAUSEA [None]
  - OXYGEN SATURATION DECREASED [None]
  - PANCREATIC CYST [None]
  - PANCREATIC NEOPLASM [None]
  - RESPIRATORY RATE INCREASED [None]
  - WEIGHT DECREASED [None]
